FAERS Safety Report 15910749 (Version 1)
Quarter: 2019Q1

REPORT INFORMATION
  Report Type: Spontaneous
  Country: US (occurrence: US)
  Receive Date: 20190204
  Receipt Date: 20190204
  Transmission Date: 20190417
  Serious: No
  Sender: FDA-Public Use
  Company Number: US-ABBVIE-18K-163-2361374-00

PATIENT
  Sex: Female

DRUGS (1)
  1. HUMIRA [Suspect]
     Active Substance: ADALIMUMAB
     Indication: RHEUMATOID ARTHRITIS
     Route: 058
     Dates: start: 201804, end: 2018

REACTIONS (13)
  - Drug intolerance [Unknown]
  - Joint stiffness [Unknown]
  - Liver function test increased [Recovered/Resolved]
  - Arthralgia [Unknown]
  - Urticaria [Unknown]
  - Anxiety [Unknown]
  - Loss of personal independence in daily activities [Recovered/Resolved]
  - Platelet count decreased [Recovered/Resolved]
  - Nausea [Unknown]
  - Drug effect incomplete [Unknown]
  - Inflammation [Unknown]
  - Dizziness [Unknown]
  - Tachycardia [Unknown]

NARRATIVE: CASE EVENT DATE: 2018
